FAERS Safety Report 4496682-9 (Version None)
Quarter: 2004Q4

REPORT INFORMATION
  Report Type: 
  Country: None (occurrence: None)
  Receive Date: 20041108
  Receipt Date: 20041108
  Transmission Date: 20050328
  Serious: Yes (Other)
  Sender: FDA-Public Use
  Company Number: None

PATIENT
  Sex: Female
  Weight: 60.782 kg

DRUGS (7)
  1. PERCOCET-5 [Suspect]
     Indication: CERVICOBRACHIAL SYNDROME
     Dosage: 1 PO TID
     Route: 048
  2. PERCOCET-5 [Suspect]
     Indication: DYSTONIA
     Dosage: 1 PO TID
     Route: 048
  3. PERCOCET-5 [Suspect]
     Indication: INTERVERTEBRAL DISC DEGENERATION
     Dosage: 1 PO TID
     Route: 048
  4. MS CONTIN [Concomitant]
  5. PREMARIN [Concomitant]
  6. NEXIUM [Concomitant]
  7. TOPAMAX [Concomitant]

REACTIONS (5)
  - CHEST PAIN [None]
  - CONDITION AGGRAVATED [None]
  - GASTROOESOPHAGEAL REFLUX DISEASE [None]
  - NAUSEA [None]
  - VOMITING [None]
